FAERS Safety Report 5084773-3 (Version None)
Quarter: 2006Q3

REPORT INFORMATION
  Report Type: 
  Country: None (occurrence: None)
  Receive Date: 20060821
  Receipt Date: 20060808
  Transmission Date: 20061208
  Serious: Yes (Hospitalization, Other)
  Sender: FDA-Public Use
  Company Number: ES-NOVOPROD-256124

PATIENT
  Age: 32 Year
  Sex: Female

DRUGS (2)
  1. NOVOSEVEN [Suspect]
     Indication: PROPHYLAXIS
     Dosage: 96 UG/KG, SINGLE
  2. ACENOCOUMAROL [Concomitant]
     Indication: CARDIAC VALVE PROSTHESIS USER

REACTIONS (1)
  - INTERNATIONAL NORMALISED RATIO DECREASED [None]
